FAERS Safety Report 22359535 (Version 1)
Quarter: 2023Q2

REPORT INFORMATION
  Report Type: Report from Study
  Country: GB (occurrence: GB)
  Receive Date: 20230524
  Receipt Date: 20230524
  Transmission Date: 20230722
  Serious: Yes (Death, Hospitalization)
  Sender: FDA-Public Use
  Company Number: GB-MYLANLABS-2023M1053468

PATIENT
  Age: 61 Year
  Sex: Male

DRUGS (1)
  1. CLADRIBINE [Suspect]
     Active Substance: CLADRIBINE
     Indication: Multiple sclerosis
     Dosage: 10 MILLIGRAM, QD (RECEIVED 2 COURSES)
     Route: 058

REACTIONS (2)
  - Off label use [Fatal]
  - Encephalitis [Fatal]
